FAERS Safety Report 4962933-7 (Version None)
Quarter: 2006Q2

REPORT INFORMATION
  Report Type: 
  Country: None (occurrence: None)
  Receive Date: 20060405
  Receipt Date: 20060303
  Transmission Date: 20061013
  Serious: Yes (Other)
  Sender: FDA-Public Use
  Company Number: US-BRISTOL-MYERS SQUIBB COMPANY-13303482

PATIENT
  Age: 75 Year
  Sex: Female
  Weight: 55 kg

DRUGS (13)
  1. ERBITUX [Suspect]
     Indication: COLON CANCER METASTATIC
     Dosage: INITIAL DOSE 17-MAR-2006 = 500 MG. DOSE HELD ON 03-MAR-2006.
     Route: 042
     Dates: start: 20060224, end: 20060224
  2. ALDACTONE [Concomitant]
     Dosage: DISCONTINUED (DATE NOT REPORTED).  NOT RESTARTED.
  3. ARANESP [Concomitant]
  4. ATROPINE [Concomitant]
     Indication: PREMEDICATION
     Route: 058
     Dates: start: 20060224, end: 20060224
  5. BENADRYL [Concomitant]
     Indication: PREMEDICATION
     Route: 042
     Dates: start: 20060224, end: 20060224
  6. CAMPTOSAR [Concomitant]
     Dosage: DOSE HELD ON 03-MAR-2006.  RESTARTED (DATE NOT REPORTED).
  7. COMPAZINE [Concomitant]
  8. DEXAMETHASONE TAB [Concomitant]
     Indication: PREMEDICATION
     Route: 042
     Dates: start: 20060224, end: 20060224
  9. K-DUR 10 [Concomitant]
  10. KYTRIL [Concomitant]
     Indication: PREMEDICATION
     Route: 042
     Dates: start: 20060224, end: 20060224
  11. LOMOTIL [Concomitant]
  12. XELODA [Concomitant]
  13. ZITHROMAX [Concomitant]
     Dates: start: 20060101

REACTIONS (5)
  - ASTHENIA [None]
  - DIARRHOEA [None]
  - JAUNDICE [None]
  - LETHARGY [None]
  - PYREXIA [None]
